FAERS Safety Report 26184093 (Version 1)
Quarter: 2025Q4

REPORT INFORMATION
  Report Type: Spontaneous
  Country: GB (occurrence: GB)
  Receive Date: 20251222
  Receipt Date: 20251222
  Transmission Date: 20260118
  Serious: Yes (Other)
  Sender: TEVA
  Company Number: None

PATIENT
  Age: 27 Year
  Sex: Male
  Weight: 68 kg

DRUGS (5)
  1. LEVOFLOXACIN [Suspect]
     Active Substance: LEVOFLOXACIN
     Indication: Epididymitis
     Route: 065
     Dates: start: 20251109, end: 20251111
  2. ACETAMINOPHEN [Concomitant]
     Active Substance: ACETAMINOPHEN
     Indication: Epididymitis
     Dates: start: 20251106, end: 20251112
  3. DOXYCYCLINE [Concomitant]
     Active Substance: DOXYCYCLINE
     Indication: Epididymitis
     Dates: start: 20251112, end: 20251122
  4. DOXYCYCLINE [Concomitant]
     Active Substance: DOXYCYCLINE
     Indication: Epididymitis
     Dates: start: 20251106, end: 20251108
  5. IBUPROFEN [Concomitant]
     Active Substance: IBUPROFEN
     Indication: Epididymitis
     Dates: start: 20251106, end: 20251112

REACTIONS (6)
  - Hypoaesthesia [Recovered/Resolved]
  - Pain in extremity [Recovered/Resolved]
  - Myalgia [Recovered/Resolved]
  - Joint noise [Recovered/Resolved]
  - Arthralgia [Recovered/Resolved]
  - Arthralgia [Recovering/Resolving]

NARRATIVE: CASE EVENT DATE: 20251110
